FAERS Safety Report 19461840 (Version 1)
Quarter: 2021Q2

REPORT INFORMATION
  Report Type: Spontaneous
  Country: US (occurrence: US)
  Receive Date: 20210625
  Receipt Date: 20210625
  Transmission Date: 20210717
  Serious: Yes (Hospitalization, Other)
  Sender: FDA-Public Use
  Company Number: US-ELI_LILLY_AND_COMPANY-US202106006666

PATIENT
  Age: 82 Year
  Sex: Male

DRUGS (4)
  1. TRULICITY [Suspect]
     Active Substance: DULAGLUTIDE
     Dosage: 0.75 MG, UNKNOWN
     Route: 065
  2. LANTUS [Concomitant]
     Active Substance: INSULIN GLARGINE
     Indication: TYPE 2 DIABETES MELLITUS
  3. TRULICITY [Suspect]
     Active Substance: DULAGLUTIDE
     Indication: TYPE 2 DIABETES MELLITUS
     Dosage: 0.75 MG, UNKNOWN
     Route: 065
     Dates: start: 2019
  4. NOVOLIN R [Concomitant]
     Active Substance: INSULIN HUMAN
     Indication: TYPE 2 DIABETES MELLITUS

REACTIONS (8)
  - Cerebrovascular accident [Not Recovered/Not Resolved]
  - Limb injury [Unknown]
  - Alopecia [Not Recovered/Not Resolved]
  - Fall [Not Recovered/Not Resolved]
  - Balance disorder [Not Recovered/Not Resolved]
  - Blood glucose increased [Recovering/Resolving]
  - Blindness unilateral [Not Recovered/Not Resolved]
  - Chest injury [Unknown]

NARRATIVE: CASE EVENT DATE: 2020
